FAERS Safety Report 23293787 (Version 6)
Quarter: 2024Q2

REPORT INFORMATION
  Report Type: Spontaneous
  Country: US (occurrence: US)
  Receive Date: 20231213
  Receipt Date: 20240426
  Transmission Date: 20240716
  Serious: Yes (Other)
  Sender: FDA-Public Use
  Company Number: US-UPSHER-SMITH LABORATORIES, LLC-2023USL01001

PATIENT
  Sex: Female

DRUGS (4)
  1. ISOTRETINOIN [Suspect]
     Active Substance: ISOTRETINOIN
     Dosage: UNK
     Dates: start: 20230504, end: 2023
  2. ISOTRETINOIN [Suspect]
     Active Substance: ISOTRETINOIN
     Dosage: UNK
     Dates: start: 20230227
  3. ISOTRETINOIN [Suspect]
     Active Substance: ISOTRETINOIN
     Dosage: 40 MG, 1X/DAY
     Dates: start: 2023, end: 20231127
  4. UNSPECIFIED INGREDIENT [Concomitant]
     Active Substance: UNSPECIFIED INGREDIENT

REACTIONS (2)
  - Exposure during pregnancy [Unknown]
  - Intentional product use issue [Recovered/Resolved]

NARRATIVE: CASE EVENT DATE: 20230101
